FAERS Safety Report 20069210 (Version 6)
Quarter: 2022Q4

REPORT INFORMATION
  Report Type: Spontaneous
  Country: GR (occurrence: GR)
  Receive Date: 20211115
  Receipt Date: 20221102
  Transmission Date: 20230112
  Serious: Yes (Other)
  Sender: FDA-Public Use
  Company Number: GR-AMGEN-GRCSP2021124841

PATIENT
  Age: 45 Year
  Sex: Female

DRUGS (16)
  1. TRASTUZUMAB [Suspect]
     Active Substance: TRASTUZUMAB
     Indication: Metastases to liver
     Dosage: UNK, 6 CYCLES
     Route: 058
  2. TRASTUZUMAB [Suspect]
     Active Substance: TRASTUZUMAB
     Indication: HER2 positive breast cancer
     Dosage: UNK,MAINTENANCE THERAPY
     Route: 065
     Dates: end: 202009
  3. TRASTUZUMAB [Suspect]
     Active Substance: TRASTUZUMAB
     Indication: Triple negative breast cancer
  4. TRASTUZUMAB [Suspect]
     Active Substance: TRASTUZUMAB
     Indication: Breast cancer
  5. TRASTUZUMAB [Suspect]
     Active Substance: TRASTUZUMAB
     Indication: HER2 negative breast cancer
  6. DOCETAXEL [Suspect]
     Active Substance: DOCETAXEL
     Indication: HER2 positive breast cancer
     Dosage: UNK
     Route: 065
     Dates: end: 202009
  7. PERTUZUMAB [Concomitant]
     Active Substance: PERTUZUMAB
     Indication: HER2 positive breast cancer
     Dosage: UNK, 6 CYCLES
     Route: 065
     Dates: end: 202009
  8. PERTUZUMAB [Concomitant]
     Active Substance: PERTUZUMAB
     Indication: Metastases to liver
     Dosage: UNK, (MAINTENANCE THERAPY)
     Route: 065
     Dates: end: 202009
  9. PERTUZUMAB [Concomitant]
     Active Substance: PERTUZUMAB
     Indication: Triple negative breast cancer
  10. PERTUZUMAB [Concomitant]
     Active Substance: PERTUZUMAB
     Indication: Breast cancer
  11. PERTUZUMAB [Concomitant]
     Active Substance: PERTUZUMAB
     Indication: HER2 negative breast cancer
  12. CYCLOPHOSPHAMIDE [Concomitant]
     Active Substance: CYCLOPHOSPHAMIDE
     Indication: Triple negative breast cancer
     Dosage: UNK, (UNKNOWN, FOUR CYCLES)
     Route: 065
  13. EPIRUBICIN [Concomitant]
     Active Substance: EPIRUBICIN
     Indication: Triple negative breast cancer
     Dosage: UNK, (UNKNOWN, FOUR CYCLES)
     Route: 065
  14. DOCETAXEL [Concomitant]
     Active Substance: DOCETAXEL
     Indication: Metastases to liver
     Dosage: UNK
     Route: 065
  15. DOCETAXEL [Concomitant]
     Active Substance: DOCETAXEL
     Indication: Triple negative breast cancer
     Dosage: UNK, (UNKNOWN, FOUR CYCLES AND THEN SIX CYCLES)
     Route: 065
  16. DOCETAXEL [Concomitant]
     Active Substance: DOCETAXEL
     Indication: Breast cancer

REACTIONS (4)
  - Sarcoid-like reaction [Unknown]
  - Sarcoidosis [Unknown]
  - Facial paralysis [Recovered/Resolved]
  - Off label use [Unknown]

NARRATIVE: CASE EVENT DATE: 20200901
